FAERS Safety Report 14324708 (Version 1)
Quarter: 2017Q4

REPORT INFORMATION
  Report Type: Spontaneous
  Country: US (occurrence: US)
  Receive Date: 20171226
  Receipt Date: 20171226
  Transmission Date: 20180321
  Serious: No
  Sender: FDA-Public Use
  Company Number: US-CLOVIS ONCOLOGY-CLO-2017-001099

PATIENT
  Age: 53 Year
  Sex: Female

DRUGS (3)
  1. OXYCODONE [Suspect]
     Active Substance: OXYCODONE
     Indication: ABDOMINAL PAIN LOWER
     Dosage: 5 MG, UNK
     Dates: start: 201709, end: 201709
  2. RUBRACA [Suspect]
     Active Substance: RUCAPARIB CAMSYLATE
     Indication: OVARIAN CANCER
     Dosage: 600 MG, BID
     Route: 048
     Dates: start: 20170911
  3. ZOMETA [Concomitant]
     Active Substance: ZOLEDRONIC ACID
     Indication: NEOPLASM MALIGNANT

REACTIONS (4)
  - Constipation [Unknown]
  - Feeding disorder [Not Recovered/Not Resolved]
  - Fatigue [Unknown]
  - Abdominal pain lower [Recovering/Resolving]

NARRATIVE: CASE EVENT DATE: 201709
